FAERS Safety Report 11743924 (Version 5)
Quarter: 2016Q2

REPORT INFORMATION
  Report Type: Spontaneous
  Country: US (occurrence: US)
  Receive Date: 20151116
  Receipt Date: 20160509
  Transmission Date: 20160815
  Serious: Yes (Other)
  Sender: FDA-Public Use
  Company Number: US-PFIZER INC-2015376307

PATIENT
  Age: 84 Year
  Sex: Male
  Weight: 70.3 kg

DRUGS (3)
  1. SUTENT [Suspect]
     Active Substance: SUNITINIB MALATE
     Dosage: 25 MG, 1X/DAY
     Route: 048
     Dates: start: 201502, end: 20160503
  2. SUTENT [Suspect]
     Active Substance: SUNITINIB MALATE
     Indication: RENAL CANCER
     Dosage: 25 MG, DAILY
     Route: 048
     Dates: start: 20150201, end: 20160503
  3. SUTENT [Suspect]
     Active Substance: SUNITINIB MALATE
     Dosage: 25 MG (1 CAPSULE), 1X/DAY
     Route: 048
     Dates: start: 20150206

REACTIONS (11)
  - Diarrhoea [Unknown]
  - Peripheral swelling [Recovered/Resolved]
  - Gastric disorder [Unknown]
  - Fall [Unknown]
  - Nausea [Unknown]
  - Weight decreased [Unknown]
  - Vomiting [Recovering/Resolving]
  - Blister [Unknown]
  - Back disorder [Unknown]
  - Decreased appetite [Unknown]
  - Dizziness [Unknown]

NARRATIVE: CASE EVENT DATE: 20160223
